FAERS Safety Report 5032044-3 (Version None)
Quarter: 2006Q2

REPORT INFORMATION
  Report Type: 
  Country: None (occurrence: None)
  Receive Date: 20060621
  Receipt Date: 20060526
  Transmission Date: 20061013
  Serious: Yes (Other)
  Sender: FDA-Public Use
  Company Number: JP-MERCK-0606USA00621

PATIENT
  Age: 82 Year
  Sex: Female
  Weight: 40 kg

DRUGS (5)
  1. FOSAMAX [Suspect]
     Indication: OSTEOPOROSIS
     Route: 048
     Dates: start: 20050310, end: 20060118
  2. ONEALFA [Concomitant]
     Indication: OSTEOPOROSIS
     Route: 048
     Dates: start: 20011124
  3. LASIX [Concomitant]
     Indication: HYPERTENSION
     Route: 048
     Dates: start: 20030305
  4. NU-LOTAN [Concomitant]
     Indication: HYPERTENSION
     Route: 048
     Dates: start: 20030827
  5. URINORM [Concomitant]
     Route: 048
     Dates: start: 20040204

REACTIONS (4)
  - BLOOD ALKALINE PHOSPHATASE DECREASED [None]
  - BLOOD PHOSPHORUS DECREASED [None]
  - HYPERLIPIDAEMIA [None]
  - URINE PHOSPHATE INCREASED [None]
